FAERS Safety Report 6135110-4 (Version None)
Quarter: 2009Q1

REPORT INFORMATION
  Report Type: 
  Country: None (occurrence: None)
  Receive Date: 20090327
  Receipt Date: 20090316
  Transmission Date: 20090719
  Serious: Yes (Other)
  Sender: FDA-Public Use
  Company Number: MY-ROCHE-621990

PATIENT
  Sex: Female
  Weight: 60 kg

DRUGS (2)
  1. PEGASYS [Suspect]
     Route: 058
     Dates: start: 20070625
  2. TELMISARTAN [Concomitant]
     Indication: HYPERTENSION
     Dosage: DOSE : 80, FREQUENCY : OD.
     Route: 048
     Dates: start: 20070723

REACTIONS (1)
  - MENORRHAGIA [None]
